FAERS Safety Report 8845763 (Version 1)
Quarter: 2012Q4

REPORT INFORMATION
  Report Type: 
  Country: FR (occurrence: FR)
  Receive Date: 20121017
  Receipt Date: 20121017
  Transmission Date: 20130627
  Serious: Yes (Hospitalization)
  Sender: FDA-Public Use
  Company Number: FR-ROCHE-785522

PATIENT
  Age: 94 Year
  Sex: Female

DRUGS (11)
  1. ROCEPHINE [Suspect]
     Indication: PRODUCT USED FOR UNKNOWN INDICATION
     Route: 065
     Dates: start: 20110507, end: 20110516
  2. FLAGYL [Suspect]
     Indication: PRODUCT USED FOR UNKNOWN INDICATION
     Route: 065
     Dates: start: 20110507, end: 20110516
  3. ATHYMIL [Concomitant]
     Dosage: ONE DOSE IN THE EVENING
     Route: 065
  4. EBIXA [Concomitant]
     Dosage: ONE DOSE IN THE MORNING AND ONE DOSE IN THE EVENING
     Route: 065
  5. SPECIAFOLDINE [Concomitant]
     Dosage: ONE DOSE IN THE EVENING
     Route: 065
  6. LEVOTHYROX [Concomitant]
     Dosage: ONE DOSE IN THE MORNING
     Route: 065
  7. TRIATEC [Concomitant]
     Dosage: ONE DOSE IN THE MORNING
     Route: 065
  8. VASTEN [Concomitant]
     Dosage: ONE DOSE IN THE EVENING
     Route: 065
  9. MACROGOL [Concomitant]
     Dosage: TWO DOSES IN THE MORNING
     Route: 065
  10. DAFALGAN [Concomitant]
     Route: 065
  11. VITAMINE B12 ROCHE [Concomitant]
     Dosage: TWO DROPS IN THE MORNING AND TWO IN THE EVENING
     Route: 065

REACTIONS (1)
  - Acute generalised exanthematous pustulosis [Recovered/Resolved]
